FAERS Safety Report 18576723 (Version 3)
Quarter: 2021Q3

REPORT INFORMATION
  Report Type: Report from Study
  Country: DE (occurrence: DE)
  Receive Date: 20201203
  Receipt Date: 20210727
  Transmission Date: 20211014
  Serious: Yes (Other)
  Sender: FDA-Public Use
  Company Number: DE-TAKEDA-2020TUS053848

PATIENT
  Age: 48 Year
  Sex: Male

DRUGS (11)
  1. IBUPROFEN. [Concomitant]
     Active Substance: IBUPROFEN
     Indication: ABDOMINAL PAIN
     Dosage: 400 MILLIGRAM
     Route: 048
     Dates: start: 202001
  2. IMODIUM [Concomitant]
     Active Substance: LOPERAMIDE HYDROCHLORIDE
     Indication: DIARRHOEA
     Dosage: 2 MILLIGRAM
     Route: 048
  3. TEDUGLUTIDE [Suspect]
     Active Substance: TEDUGLUTIDE
     Indication: SHORT-BOWEL SYNDROME
     Dosage: 3.7 MILLIGRAM
     Route: 065
     Dates: start: 20160303, end: 201701
  4. IBUPROFEN. [Concomitant]
     Active Substance: IBUPROFEN
     Indication: ARTHRALGIA
  5. TEDUGLUTIDE [Suspect]
     Active Substance: TEDUGLUTIDE
     Dosage: 3.7 MILLIGRAM
     Route: 065
     Dates: start: 201701
  6. TEDUGLUTIDE [Suspect]
     Active Substance: TEDUGLUTIDE
     Dosage: 3.7 MILLIGRAM
     Route: 065
     Dates: start: 201701
  7. TEDUGLUTIDE [Suspect]
     Active Substance: TEDUGLUTIDE
     Dosage: 3.7 MILLIGRAM
     Route: 065
     Dates: start: 201701
  8. TEDUGLUTIDE [Suspect]
     Active Substance: TEDUGLUTIDE
     Indication: SHORT-BOWEL SYNDROME
     Dosage: 3.7 MILLIGRAM
     Route: 065
     Dates: start: 20160303, end: 201701
  9. TEDUGLUTIDE [Suspect]
     Active Substance: TEDUGLUTIDE
     Indication: SHORT-BOWEL SYNDROME
     Dosage: 3.7 MILLIGRAM
     Route: 065
     Dates: start: 20160303, end: 201701
  10. TEDUGLUTIDE [Suspect]
     Active Substance: TEDUGLUTIDE
     Dosage: 3.7 MILLIGRAM
     Route: 065
     Dates: start: 201701
  11. TEDUGLUTIDE [Suspect]
     Active Substance: TEDUGLUTIDE
     Indication: SHORT-BOWEL SYNDROME
     Dosage: 3.7 MILLIGRAM
     Route: 065
     Dates: start: 20160303, end: 201701

REACTIONS (2)
  - COVID-19 [Recovered/Resolved]
  - Vitamin D deficiency [Not Recovered/Not Resolved]

NARRATIVE: CASE EVENT DATE: 202010
